FAERS Safety Report 10354126 (Version 2)
Quarter: 2014Q3

REPORT INFORMATION
  Report Type: Report from Study
  Country: ES (occurrence: ES)
  Receive Date: 20140731
  Receipt Date: 20140731
  Transmission Date: 20150326
  Serious: Yes (Life-Threatening, Hospitalization)
  Sender: FDA-Public Use
  Company Number: ES-ROCHE-1420626

PATIENT
  Age: 65 Year
  Sex: Male
  Weight: 76.2 kg

DRUGS (9)
  1. CLOTIAPINE [Concomitant]
     Active Substance: CLOTHIAPINE
     Route: 065
     Dates: start: 1984
  2. RITUXIMAB [Suspect]
     Active Substance: RITUXIMAB
     Indication: NON-HODGKIN^S LYMPHOMA UNSPECIFIED HISTOLOGY INDOLENT
     Dosage: LAST DOSE ADMINISTERED BEFORE THE SAE WAS ON 28/MAY/2014
     Route: 042
     Dates: start: 20140402
  3. SPIRIVA [Concomitant]
     Active Substance: TIOTROPIUM BROMIDE MONOHYDRATE
     Route: 065
     Dates: start: 2014
  4. GANCICLOVIR [Suspect]
     Active Substance: GANCICLOVIR
     Indication: CYTOMEGALOVIRUS INFECTION
     Route: 065
     Dates: start: 20140613, end: 20140625
  5. LORAZEPAM. [Concomitant]
     Active Substance: LORAZEPAM
     Route: 065
     Dates: start: 20140414
  6. BIPERIDEN [Concomitant]
     Active Substance: BIPERIDEN
     Route: 065
     Dates: start: 1984
  7. BENDAMUSTINE [Suspect]
     Active Substance: BENDAMUSTINE
     Indication: NON-HODGKIN^S LYMPHOMA UNSPECIFIED HISTOLOGY INDOLENT
     Dosage: LAST DOSE ADMINISTERED BEFORE THE SAE WAS ON 29/MAY/2014
     Route: 042
     Dates: start: 20140402
  8. BLINDED GS-1101 [Suspect]
     Active Substance: IDELALISIB
     Indication: NON-HODGKIN^S LYMPHOMA UNSPECIFIED HISTOLOGY INDOLENT
     Dosage: LAST DOSE ADMINISTERED BEFORE THE SAE WAS ON 05/JUN/2014.
     Route: 048
     Dates: start: 20140402
  9. SULFAMETHOXAZOLE/TRIMETHOPRIM [Suspect]
     Active Substance: SULFAMETHOXAZOLE\TRIMETHOPRIM
     Indication: CYTOMEGALOVIRUS INFECTION
     Route: 065
     Dates: start: 20140612

REACTIONS (4)
  - Ventricular arrhythmia [Recovered/Resolved]
  - Arrhythmia supraventricular [Recovered/Resolved]
  - Febrile neutropenia [Recovered/Resolved]
  - Pneumonitis [Recovered/Resolved]

NARRATIVE: CASE EVENT DATE: 20140606
